FAERS Safety Report 5528382-8 (Version None)
Quarter: 2007Q4

REPORT INFORMATION
  Report Type: 
  Country: None (occurrence: None)
  Receive Date: 20071121
  Receipt Date: 20071107
  Transmission Date: 20080405
  Serious: Yes (Other)
  Sender: FDA-Public Use
  Company Number: 2007S1011593

PATIENT
  Age: 50 Year
  Sex: Male
  Weight: 69 kg

DRUGS (4)
  1. CITALOPRAM HYDROBROMIDE [Suspect]
     Indication: DEPRESSION
     Dosage: 10 MG; 1; ORAL; 20 MG; 1; ORAL
     Route: 048
     Dates: start: 20060606
  2. CITALOPRAM HYDROBROMIDE [Suspect]
     Indication: DEPRESSION
     Dosage: 10 MG; 1; ORAL; 20 MG; 1; ORAL
     Route: 048
     Dates: start: 20060720
  3. BECLOMETHASONE DIPROPIONATE [Concomitant]
  4. OMEPRAZOLE [Concomitant]

REACTIONS (1)
  - DISORIENTATION [None]
